FAERS Safety Report 9803919 (Version 1)
Quarter: 2014Q1

REPORT INFORMATION
  Report Type: Spontaneous
  Country: FR (occurrence: FR)
  Receive Date: 20140108
  Receipt Date: 20140108
  Transmission Date: 20141002
  Serious: Yes (Hospitalization)
  Sender: FDA-Public Use
  Company Number: FR-SA-2014SA000853

PATIENT
  Age: 58 Year
  Sex: Female

DRUGS (7)
  1. TAXOTERE [Suspect]
     Indication: LARYNGEAL CANCER
     Dosage: FREQUENCY: ON DAY 3
     Route: 042
     Dates: start: 20131125
  2. TAXOTERE [Suspect]
     Indication: LARYNGEAL CANCER
     Dosage: FREQUENCY: ON DAY 3
     Route: 042
     Dates: start: 20131218, end: 20131218
  3. FLUOROURACIL [Concomitant]
     Dosage: IN PERFUSION CONTINUED FROM DAY 1 TO DAY 4
     Dates: start: 20131125
  4. CISPLATINE [Concomitant]
     Dosage: FROM DAY 1 TO DAY 4 WITH HYDRATION
     Dates: start: 20131125
  5. EMEND [Concomitant]
  6. ZOPHREN [Concomitant]
  7. SOLUMEDROL [Concomitant]

REACTIONS (3)
  - Bradycardia [Recovered/Resolved]
  - Hypotension [Recovered/Resolved]
  - Nausea [Recovered/Resolved]
